FAERS Safety Report 10265489 (Version 1)
Quarter: 2014Q2

REPORT INFORMATION
  Report Type: Spontaneous
  Country: US (occurrence: None)
  Receive Date: 20140624
  Receipt Date: 20140624
  Transmission Date: 20141212
  Serious: Yes (Other)
  Sender: FDA-Public Use
  Company Number: 2014SUP00009

PATIENT
  Age: 62 Year
  Sex: Female
  Weight: 72.6 kg

DRUGS (6)
  1. TROKENDI XR [Suspect]
     Indication: MIGRAINE
     Dosage: 100 MG, 1X/DAY, ORAL
     Route: 048
     Dates: start: 20140601
  2. METOPROLOL [Concomitant]
  3. CO Q-10 [Concomitant]
  4. BIOTENE [Concomitant]
  5. EMERGEN C [Concomitant]
  6. PRILOSEC [Concomitant]

REACTIONS (6)
  - Negative thoughts [None]
  - Thinking abnormal [None]
  - Paraesthesia [None]
  - Suicidal ideation [None]
  - Off label use [None]
  - Emotional disorder [None]
